FAERS Safety Report 12800890 (Version 2)
Quarter: 2016Q4

REPORT INFORMATION
  Report Type: Report from Study
  Country: PK (occurrence: PK)
  Receive Date: 20161002
  Receipt Date: 20161007
  Transmission Date: 20170207
  Serious: Yes (Death, Other)
  Sender: FDA-Public Use
  Company Number: PHHY2016PK133906

PATIENT
  Age: 39 Year
  Sex: Male
  Weight: 87 kg

DRUGS (1)
  1. GLIVEC [Suspect]
     Active Substance: IMATINIB MESYLATE
     Indication: CHRONIC MYELOID LEUKAEMIA
     Dosage: 4 DF, BID (800 MG, 4 BD )
     Route: 048
     Dates: start: 20111226

REACTIONS (11)
  - Diplopia [Unknown]
  - Photophobia [Unknown]
  - Coma scale abnormal [Fatal]
  - Ophthalmoplegia [Unknown]
  - Nystagmus [Unknown]
  - Haemoglobin decreased [Unknown]
  - Platelet count decreased [Unknown]
  - Headache [Unknown]
  - White blood cell count increased [Unknown]
  - Nausea [Unknown]
  - Facial paralysis [Unknown]

NARRATIVE: CASE EVENT DATE: 20160821
